FAERS Safety Report 20028218 (Version 1)
Quarter: 2021Q4

REPORT INFORMATION
  Report Type: Report from Study
  Country: EG (occurrence: EG)
  Receive Date: 20211103
  Receipt Date: 20211103
  Transmission Date: 20220303
  Serious: Yes (Other)
  Sender: FDA-Public Use
  Company Number: EG-NOVARTISPH-NVSC2021EG244241

PATIENT
  Age: 38 Year
  Sex: Female

DRUGS (3)
  1. KISQALI [Suspect]
     Active Substance: RIBOCICLIB
     Indication: Breast cancer metastatic
     Dosage: 200 MG
     Route: 048
  2. KISQALI [Suspect]
     Active Substance: RIBOCICLIB
     Indication: Lymphoma
     Dosage: 3 DF, QD
     Route: 048
     Dates: start: 202002
  3. KISQALI [Suspect]
     Active Substance: RIBOCICLIB
     Dosage: 2 DF, QD
     Route: 048
     Dates: start: 202006, end: 202106

REACTIONS (15)
  - Hepatic enzyme abnormal [Recovered/Resolved]
  - Dyspnoea [Recovered/Resolved]
  - Dry skin [Recovered/Resolved]
  - Headache [Recovered/Resolved]
  - Lymphadenopathy [Recovered/Resolved]
  - Breast oedema [Not Recovered/Not Resolved]
  - Musculoskeletal stiffness [Not Recovered/Not Resolved]
  - Breast discomfort [Not Recovered/Not Resolved]
  - Breast discolouration [Not Recovered/Not Resolved]
  - Breast pain [Not Recovered/Not Resolved]
  - Food allergy [Not Recovered/Not Resolved]
  - Breast cancer metastatic [Not Recovered/Not Resolved]
  - Lymphoma [Not Recovered/Not Resolved]
  - Malignant neoplasm progression [Not Recovered/Not Resolved]
  - Product use in unapproved indication [Unknown]

NARRATIVE: CASE EVENT DATE: 20200201
